FAERS Safety Report 7015517-3 (Version None)
Quarter: 2010Q3

REPORT INFORMATION
  Report Type: 
  Country: None (occurrence: None)
  Receive Date: 20100927
  Receipt Date: 20100915
  Transmission Date: 20110219
  Serious: Yes (Hospitalization, Other)
  Sender: FDA-Public Use
  Company Number: US-ELI_LILLY_AND_COMPANY-US201009004528

PATIENT
  Sex: Female

DRUGS (4)
  1. FORTEO [Suspect]
     Indication: OSTEOPOROSIS
     Dosage: 20 UG, DAILY (1/D)
     Dates: start: 20100908, end: 20100911
  2. METOPROLOL TARTRATE [Concomitant]
     Dosage: 25 MG, UNK
  3. OMEPRAZOLE [Concomitant]
     Dosage: 20 MG, UNK
  4. CIPROFLOXACIN [Concomitant]
     Dosage: 500 MG, 2/D

REACTIONS (3)
  - AMNESIA [None]
  - HYPOAESTHESIA [None]
  - HYPONATRAEMIA [None]
